FAERS Safety Report 17432085 (Version 3)
Quarter: 2020Q2

REPORT INFORMATION
  Report Type: Spontaneous
  Country: NL (occurrence: NL)
  Receive Date: 20200218
  Receipt Date: 20200529
  Transmission Date: 20200713
  Serious: No
  Sender: FDA-Public Use
  Company Number: NL-ALLERGAN-2007473US

PATIENT
  Sex: Male

DRUGS (3)
  1. CISORDINOL DEPOT [Concomitant]
     Active Substance: ZUCLOPENTHIXOL
     Dosage: 50 MG, Q2WEEKS
  2. CARIPRAZINE HCL - BP [Suspect]
     Active Substance: CARIPRAZINE HYDROCHLORIDE
     Indication: PROPHYLAXIS
  3. CARIPRAZINE HCL - BP [Suspect]
     Active Substance: CARIPRAZINE HYDROCHLORIDE
     Indication: PSYCHOTIC DISORDER
     Dosage: 1.5 MG
     Route: 065

REACTIONS (2)
  - Off label use [Unknown]
  - Intentional product use issue [Unknown]
